FAERS Safety Report 16344365 (Version 2)
Quarter: 2019Q2

REPORT INFORMATION
  Report Type: Spontaneous
  Country: SE (occurrence: SE)
  Receive Date: 20190522
  Receipt Date: 20190618
  Transmission Date: 20190711
  Serious: Yes (Other)
  Sender: FDA-Public Use
  Company Number: SE-REGENERON PHARMACEUTICALS, INC.-2019-33054

PATIENT

DRUGS (5)
  1. EYLEA [Suspect]
     Active Substance: AFLIBERCEPT
     Indication: NEOVASCULAR AGE-RELATED MACULAR DEGENERATION
     Dosage: UNK, PRN, RIGHT EYE (4 INJECTIONS)
  2. EYLEA [Suspect]
     Active Substance: AFLIBERCEPT
     Indication: NEOVASCULAR AGE-RELATED MACULAR DEGENERATION
     Dosage: UNK UNK, Q1MON, RIGHT EYE (RECEIVED 3 LOADING DOSES)
     Dates: start: 201309, end: 201311
  3. EYLEA [Suspect]
     Active Substance: AFLIBERCEPT
     Dosage: UNK, INJECTIONS TO LEFT EYE, RECEIVED TOTAL OF 24 INJECTIONS
     Dates: start: 2016
  4. EYLEA [Suspect]
     Active Substance: AFLIBERCEPT
     Dosage: UNK, SHORTENED TO 8 WEEKS, THEN EXTENDED TO UP 10- AND 12-WEEKS (TOTAL OF 15 INJECTIONS IN TREAT AND
     Dates: start: 2018
  5. EYLEA [Suspect]
     Active Substance: AFLIBERCEPT
     Dosage: UNK, TREAT AND EXTEND REGIMEN (6-WEEK TO 8-, 10- AND 12-WEEK INTERVAL)
     Dates: start: 201511

REACTIONS (8)
  - Off label use [Unknown]
  - Macular fibrosis [Unknown]
  - Macular fibrosis [Unknown]
  - Retinal oedema [Recovered/Resolved]
  - Inappropriate schedule of product administration [Unknown]
  - Retinal pigmentation [Unknown]
  - Retinal oedema [Recovered/Resolved]
  - Retinal pigmentation [Unknown]

NARRATIVE: CASE EVENT DATE: 2016
